FAERS Safety Report 23711456 (Version 1)
Quarter: 2024Q2

REPORT INFORMATION
  Report Type: Spontaneous
  Country: FR (occurrence: FR)
  Receive Date: 20240405
  Receipt Date: 20240405
  Transmission Date: 20240716
  Serious: Yes (Hospitalization)
  Sender: FDA-Public Use
  Company Number: FR-SA-200612471FR

PATIENT
  Age: 50 Year
  Sex: Female
  Weight: 67 kg

DRUGS (3)
  1. TAXOTERE [Suspect]
     Active Substance: DOCETAXEL
     Indication: Breast cancer metastatic
     Dosage: 100 MG/M2, QCY
     Route: 042
     Dates: start: 20050308, end: 20050614
  2. HERCEPTIN [Suspect]
     Active Substance: TRASTUZUMAB
     Indication: Breast cancer metastatic
     Dosage: UNK, THE PATIENT RECEIVED 5 CYCLES
     Route: 042
     Dates: start: 20050308, end: 20050614
  3. HERCEPTIN [Suspect]
     Active Substance: TRASTUZUMAB
     Dosage: 402 MG, Q3W, THE PATIENT RECEIVED 6 MG/KG TRASTUZUMAB PER DAY, EVERY 21 DAYS (3 WEEKS)
     Route: 042
     Dates: start: 20050720, end: 20060307

REACTIONS (2)
  - Ejection fraction decreased [Unknown]
  - Cardiac disorder [Unknown]

NARRATIVE: CASE EVENT DATE: 20050501
